FAERS Safety Report 5079832-5 (Version None)
Quarter: 2006Q3

REPORT INFORMATION
  Report Type: 
  Country: None (occurrence: None)
  Receive Date: 20060720
  Receipt Date: 20050718
  Transmission Date: 20061208
  Serious: Yes (Other)
  Sender: FDA-Public Use
  Company Number: 2005080624

PATIENT
  Sex: Female
  Weight: 45.3597 kg

DRUGS (5)
  1. CELEBREX [Suspect]
     Indication: OSTEOARTHRITIS
     Dosage: 600 MG (200 MG, 3 IN 1 D) ORAL
     Route: 048
     Dates: start: 20030519, end: 20030707
  2. PREMARIN [Concomitant]
  3. VITAMINS [Concomitant]
  4. CHONDROITIN/GLUCOSAMINE) [Concomitant]
  5. CALCIUM GLUCONATE [Concomitant]

REACTIONS (4)
  - ARTHRALGIA [None]
  - DIVERTICULITIS [None]
  - DRUG EFFECT DECREASED [None]
  - GASTRIC ULCER [None]
